FAERS Safety Report 15916851 (Version 1)
Quarter: 2019Q1

REPORT INFORMATION
  Report Type: Report from Study
  Country: US (occurrence: US)
  Receive Date: 20190205
  Receipt Date: 20190205
  Transmission Date: 20190417
  Serious: Yes (Other)
  Sender: FDA-Public Use
  Company Number: US-SA-2014SA011416

PATIENT
  Age: 58 Year
  Sex: Female

DRUGS (1)
  1. TERIFLUNOMIDE. [Suspect]
     Active Substance: TERIFLUNOMIDE
     Indication: MULTIPLE SCLEROSIS
     Dosage: 14 MG,QD
     Route: 048
     Dates: start: 20140111

REACTIONS (9)
  - Abdominal pain upper [Recovered/Resolved]
  - Insomnia [Unknown]
  - Unevaluable event [Not Recovered/Not Resolved]
  - Inflammation [Unknown]
  - Gait disturbance [Recovering/Resolving]
  - Radiotherapy [Unknown]
  - Aphonia [Unknown]
  - Cough [Not Recovered/Not Resolved]
  - Choking [Not Recovered/Not Resolved]

NARRATIVE: CASE EVENT DATE: 20140123
